FAERS Safety Report 8528399-5 (Version None)
Quarter: 2012Q3

REPORT INFORMATION
  Report Type: 
  Country: None (occurrence: None)
  Receive Date: 20120722
  Receipt Date: 20120716
  Transmission Date: 20120928
  Serious: Yes (Other)
  Sender: FDA-Public Use
  Company Number: PHHY2012TR060994

PATIENT
  Age: 14 Year
  Sex: Female

DRUGS (5)
  1. CYTARABINE [Suspect]
     Route: 037
  2. IDARUBICIN HCL [Suspect]
     Indication: ACUTE MYELOID LEUKAEMIA
     Dosage: 7 MG/M2, DAILY
  3. CYTARABINE [Suspect]
     Indication: ACUTE MYELOID LEUKAEMIA
     Dosage: 100 MG/M2, DAILY
  4. ETOPOSIDE [Suspect]
     Indication: ACUTE MYELOID LEUKAEMIA
     Dosage: 100 MG/M2, PER DAY
  5. CYTARABINE [Suspect]
     Dosage: 100 MG/M2, BID

REACTIONS (1)
  - HISTIOCYTOSIS [None]
